FAERS Safety Report 18096894 (Version 1)
Quarter: 2020Q3

REPORT INFORMATION
  Report Type: Spontaneous
  Country: PL (occurrence: PL)
  Receive Date: 20200731
  Receipt Date: 20200731
  Transmission Date: 20201103
  Serious: Yes (Other)
  Sender: FDA-Public Use
  Company Number: PL-ACCORD-193387

PATIENT
  Age: 67 Year
  Sex: Female
  Weight: 54 kg

DRUGS (7)
  1. FLUOROURACIL. [Suspect]
     Active Substance: FLUOROURACIL
     Indication: GASTRIC CANCER
     Dosage: DOSE: 912; DOSE UNIT: NOT SPECIFIED
     Dates: start: 20171127, end: 20171128
  2. FLUOROURACIL. [Suspect]
     Active Substance: FLUOROURACIL
     Indication: GASTRIC CANCER
     Dosage: DOSE: 608 AND 912, DOSE UNIT: NOT SPECIFIED
     Dates: start: 20171127, end: 20171128
  3. ZARZIO [Suspect]
     Active Substance: FILGRASTIM
     Indication: GASTRIC CANCER
     Dates: start: 20171130, end: 20171203
  4. IRINOTECAN [Suspect]
     Active Substance: IRINOTECAN
     Indication: GASTRIC CANCER
     Dosage: DOSE: 273, DOSE UNIT: NOT SPECIFIED
     Dates: start: 20171127, end: 20171127
  5. ONDANSETRON [Suspect]
     Active Substance: ONDANSETRON
     Indication: GASTRIC CANCER
     Dosage: DOSE: 8, DOSE UNIT: NOT SPECIFIED
     Dates: start: 20171127, end: 20171128
  6. ATROPINE. [Suspect]
     Active Substance: ATROPINE
     Indication: GASTRIC CANCER
     Dosage: DOSE: 0.5, DOSE UNIT: NOT SPECIFIED
     Dates: start: 20171127, end: 20171127
  7. DEXAVEN [Suspect]
     Active Substance: DEXAMETHASONE
     Indication: GASTRIC CANCER
     Dosage: DOSE: 8, DOSE UNIT: NOT SPECIFIED
     Dates: start: 20171127, end: 20171128

REACTIONS (2)
  - Leukopenia [Recovering/Resolving]
  - Neutropenia [Recovering/Resolving]

NARRATIVE: CASE EVENT DATE: 20171211
